FAERS Safety Report 9433608 (Version 1)
Quarter: 2013Q3

REPORT INFORMATION
  Report Type: Spontaneous
  Country: DE (occurrence: DE)
  Receive Date: 20130731
  Receipt Date: 20130731
  Transmission Date: 20140515
  Serious: Yes (Other)
  Sender: FDA-Public Use
  Company Number: DE-JHP PHARMACEUTICALS, LLC-JHP201300476

PATIENT
  Age: 26 Year
  Sex: Male

DRUGS (1)
  1. COLY-MYCIN M PARENTERAL [Suspect]
     Indication: BACTERIAL INFECTION

REACTIONS (2)
  - Tracheobronchitis [Recovered/Resolved]
  - Off label use [Recovered/Resolved]
